FAERS Safety Report 11138563 (Version 2)
Quarter: 2016Q2

REPORT INFORMATION
  Report Type: Spontaneous
  Country: US (occurrence: US)
  Receive Date: 20150527
  Receipt Date: 20160523
  Transmission Date: 20160815
  Serious: No
  Sender: FDA-Public Use
  Company Number: US-TEVA-532511USA

PATIENT
  Sex: Female

DRUGS (1)
  1. SOTALOL. [Suspect]
     Active Substance: SOTALOL
     Indication: ARRHYTHMIA
     Dosage: 160 MILLIGRAM DAILY;
     Route: 065

REACTIONS (3)
  - Hypoaesthesia [Unknown]
  - Poor peripheral circulation [Unknown]
  - Peripheral coldness [Unknown]
